APPROVED DRUG PRODUCT: SPRITAM
Active Ingredient: LEVETIRACETAM
Strength: 1GM
Dosage Form/Route: TABLET, FOR SUSPENSION;ORAL
Application: N207958 | Product #004
Applicant: APRECIA PHARMACEUTICALS LLC
Approved: Jul 31, 2015 | RLD: Yes | RS: No | Type: DISCN

PATENTS:
Patent 9339489 | Expires: Mar 14, 2034
Patent 9669009 | Expires: Mar 14, 2034
Patent 9669009 | Expires: Mar 14, 2034
Patent 9669009 | Expires: Mar 14, 2034
Patent 11160786 | Expires: Mar 14, 2034